FAERS Safety Report 6539618-9 (Version None)
Quarter: 2010Q1

REPORT INFORMATION
  Report Type: 
  Country: None (occurrence: None)
  Receive Date: 20100111
  Receipt Date: 20100106
  Transmission Date: 20100710
  Serious: Yes (Other)
  Sender: FDA-Public Use
  Company Number: S07-USA-01562-01

PATIENT
  Age: 74 Year
  Sex: Female

DRUGS (8)
  1. THYROID TAB [Suspect]
     Indication: HYPOTHYROIDISM
     Dosage: 60 MG (60 MG, 1 IN 1 D), ORAL
     Route: 048
     Dates: start: 19890101, end: 20041001
  2. ARMOUR THYROID (THYROID) (90 MILLIGRAM, TABLETS) [Suspect]
     Indication: HYPOTHYROIDISM
     Dosage: 90 MG (90 MG, 1 IN 1 D), ORAL; 60 MG (60 MG, 1 IN 1 D), ORAL
     Route: 048
     Dates: start: 20041001, end: 20040101
  3. ARMOUR THYROID (THYROID) (90 MILLIGRAM, TABLETS) [Suspect]
     Indication: HYPOTHYROIDISM
     Dosage: 90 MG (90 MG, 1 IN 1 D), ORAL; 60 MG (60 MG, 1 IN 1 D), ORAL
     Route: 048
     Dates: start: 20040101
  4. THYROID TAB [Suspect]
     Indication: HYPOTHYROIDISM
     Dosage: 60 MG ALTERNATING WITH 75 MG (1 IN 1 D), ORAL
     Route: 048
     Dates: end: 20091001
  5. MULTI-VITAMIN [Concomitant]
  6. HERBS (NOS) [Concomitant]
  7. SUPPLEMENTS (NOS) [Concomitant]
  8. MECLIZINE [Concomitant]

REACTIONS (14)
  - ABDOMINAL DISTENSION [None]
  - ABDOMINAL PAIN UPPER [None]
  - AUTOIMMUNE THYROIDITIS [None]
  - DRUG DISPENSING ERROR [None]
  - FEELING JITTERY [None]
  - FLATULENCE [None]
  - INCORRECT DOSE ADMINISTERED [None]
  - MENTAL IMPAIRMENT [None]
  - NAUSEA [None]
  - PRODUCT QUALITY ISSUE [None]
  - PSYCHOMOTOR HYPERACTIVITY [None]
  - SENSATION OF FOREIGN BODY [None]
  - TEMPERATURE INTOLERANCE [None]
  - WEIGHT DECREASED [None]
